FAERS Safety Report 7634401-5 (Version None)
Quarter: 2011Q3

REPORT INFORMATION
  Report Type: 
  Country: None (occurrence: None)
  Receive Date: 20110725
  Receipt Date: 20110714
  Transmission Date: 20111222
  Serious: Yes (Other)
  Sender: FDA-Public Use
  Company Number: PHHY2011CA63864

PATIENT
  Sex: Female

DRUGS (3)
  1. CLOZAPINE [Suspect]
  2. AZITHROMYCIN [Concomitant]
     Dosage: UNK UKN, UNK
  3. SERTRALINE HYDROCHLORIDE [Concomitant]
     Dosage: UNK UKN, UNK

REACTIONS (4)
  - THROMBOCYTOPENIA [None]
  - DEPRESSED LEVEL OF CONSCIOUSNESS [None]
  - HEPATIC STEATOSIS [None]
  - NEUTROPENIA [None]
